FAERS Safety Report 7361520-3 (Version None)
Quarter: 2011Q1

REPORT INFORMATION
  Report Type: 
  Country: None (occurrence: None)
  Receive Date: 20110318
  Receipt Date: 20110310
  Transmission Date: 20110831
  Serious: Yes (Other)
  Sender: FDA-Public Use
  Company Number: PHFR2011GB01885

PATIENT
  Sex: Male

DRUGS (1)
  1. VOLTAREN [Suspect]
     Indication: BACK DISORDER
     Dosage: 100-200MG DAILY

REACTIONS (3)
  - DRUG ABUSE [None]
  - DRUG INTOLERANCE [None]
  - HAEMORRHAGE [None]
